FAERS Safety Report 17059440 (Version 1)
Quarter: 2019Q4

REPORT INFORMATION
  Report Type: Report from Study
  Country: ZA (occurrence: ZA)
  Receive Date: 20191121
  Receipt Date: 20191121
  Transmission Date: 20200122
  Serious: Yes (Life-Threatening, Other)
  Sender: FDA-Public Use
  Company Number: ZA-PFIZER INC-2019496610

PATIENT
  Age: 39 Year
  Sex: Male

DRUGS (46)
  1. LEVOFLOXACIN. [Suspect]
     Active Substance: LEVOFLOXACIN
     Dosage: 1 G, QD
     Route: 048
     Dates: start: 20181215, end: 20190221
  2. CLOFAZIMINE [Suspect]
     Active Substance: CLOFAZIMINE
     Indication: TUBERCULOSIS
     Dosage: 100 MG, QD
     Route: 048
     Dates: start: 20190306, end: 20190519
  3. AUGMENTIN [Suspect]
     Active Substance: AMOXICILLIN\CLAVULANATE POTASSIUM
     Indication: TUBERCULOSIS
     Dosage: 1 G, BID (12 HRS/DAY)
     Route: 048
     Dates: start: 20181221, end: 20190221
  4. AUGMENTIN [Suspect]
     Active Substance: AMOXICILLIN\CLAVULANATE POTASSIUM
     Dosage: 1 G, BID (12 HRS/DAY)
     Route: 048
     Dates: start: 20190701
  5. MAXOLON [Concomitant]
     Active Substance: METOCLOPRAMIDE HYDROCHLORIDE
  6. NEVIRAPINE. [Concomitant]
     Active Substance: NEVIRAPINE
  7. BACTRIM [Concomitant]
     Active Substance: SULFAMETHOXAZOLE\TRIMETHOPRIM
  8. TEGRETOL [Concomitant]
     Active Substance: CARBAMAZEPINE
  9. DELAMANID [Suspect]
     Active Substance: DELAMANID
     Indication: TUBERCULOSIS
     Dosage: 100 MG, BID
     Route: 048
     Dates: start: 20190306, end: 20190519
  10. ISONIAZID. [Suspect]
     Active Substance: ISONIAZID
     Dosage: 600 MG, QD
     Route: 048
     Dates: start: 20190306
  11. ISONIAZID. [Suspect]
     Active Substance: ISONIAZID
     Dosage: 600 MG, QD
     Route: 048
     Dates: start: 20190701
  12. TERIZIDONE [Suspect]
     Active Substance: TERIZIDONE
     Dosage: 250/500 MG, BID
     Route: 048
     Dates: start: 20181215, end: 20190221
  13. CLOFAZIMINE [Suspect]
     Active Substance: CLOFAZIMINE
     Dosage: 100 MG, QD
     Route: 048
     Dates: start: 20181215, end: 20190221
  14. TRUVADA [Suspect]
     Active Substance: EMTRICITABINE\TENOFOVIR DISOPROXIL FUMARATE
     Indication: ANTIRETROVIRAL THERAPY
  15. PYRIDOXINE [Concomitant]
     Active Substance: PYRIDOXINE
  16. DUMIVA [Concomitant]
     Active Substance: ABACAVIR SULFATE\LAMIVUDINE
  17. PAS [Suspect]
     Active Substance: AMINOSALICYLIC ACID
     Dosage: 8 G, QD
     Route: 048
     Dates: start: 20190701
  18. PYRAZINAMIDE. [Suspect]
     Active Substance: PYRAZINAMIDE
     Indication: TUBERCULOSIS
     Dosage: 1.5 G, QD
     Route: 048
     Dates: start: 20181215, end: 20190221
  19. PYRAZINAMIDE. [Suspect]
     Active Substance: PYRAZINAMIDE
     Dosage: 1.5 G, QD
     Route: 048
     Dates: start: 20190306, end: 2019
  20. LASIX [Concomitant]
     Active Substance: FUROSEMIDE
  21. ELTROXIN [Concomitant]
     Active Substance: LEVOTHYROXINE
  22. AMITRIPTYLINE [Concomitant]
     Active Substance: AMITRIPTYLINE
  23. LINEZOLID. [Suspect]
     Active Substance: LINEZOLID
     Dosage: 600 MG, QD
     Route: 048
     Dates: start: 20190306, end: 2019
  24. DELAMANID [Suspect]
     Active Substance: DELAMANID
     Dosage: 100 MG, BID
     Route: 048
     Dates: start: 20190107, end: 20190221
  25. ISONIAZID. [Suspect]
     Active Substance: ISONIAZID
     Indication: TUBERCULOSIS
     Dosage: 600 MG, QD
     Route: 048
     Dates: start: 20181215, end: 20190221
  26. PAS [Suspect]
     Active Substance: AMINOSALICYLIC ACID
     Indication: TUBERCULOSIS
     Dosage: 8 G, QD
     Route: 048
     Dates: start: 20190306, end: 20190519
  27. CLOFAZIMINE [Suspect]
     Active Substance: CLOFAZIMINE
     Dosage: 100 MG, QD
     Route: 048
     Dates: start: 20190701
  28. ERTAPENEM. [Suspect]
     Active Substance: ERTAPENEM SODIUM
     Dosage: 1 G, QD
     Route: 048
     Dates: start: 20190306
  29. ALUVIA [Concomitant]
     Active Substance: LOPINAVIR\RITONAVIR
  30. LINEZOLID. [Suspect]
     Active Substance: LINEZOLID
     Dosage: 600 MG, QD
     Route: 048
     Dates: start: 20190701
  31. LEVOFLOXACIN. [Suspect]
     Active Substance: LEVOFLOXACIN
     Indication: TUBERCULOSIS
     Dosage: 1 G, QD
     Route: 048
     Dates: start: 20190306, end: 20190519
  32. ERTAPENEM. [Suspect]
     Active Substance: ERTAPENEM SODIUM
     Dosage: 1 G, QD
     Route: 048
     Dates: start: 20190701
  33. AUGMENTIN [Suspect]
     Active Substance: AMOXICILLIN\CLAVULANATE POTASSIUM
     Dosage: 1 G, BID (12 HRS/DAY)
     Route: 048
     Dates: start: 20190306
  34. LINEZOLID. [Suspect]
     Active Substance: LINEZOLID
     Indication: TUBERCULOSIS
     Dosage: 600 MG, QD
     Route: 048
     Dates: start: 20181215, end: 20190221
  35. PAS [Suspect]
     Active Substance: AMINOSALICYLIC ACID
     Dosage: 8 G, QD
     Route: 048
     Dates: start: 20181215, end: 20190221
  36. PYRAZINAMIDE. [Suspect]
     Active Substance: PYRAZINAMIDE
     Dosage: 1.5 G, QD
     Route: 048
     Dates: start: 20190701
  37. BEDAQUILINE [Suspect]
     Active Substance: BEDAQUILINE
     Dosage: 200 MG, MWF
     Route: 048
     Dates: start: 20181018, end: 20190221
  38. FOLATE [Concomitant]
     Active Substance: FOLATE SODIUM
  39. LEVOFLOXACIN. [Suspect]
     Active Substance: LEVOFLOXACIN
     Dosage: 1 G, QD
     Route: 048
     Dates: start: 20190701
  40. TERIZIDONE [Suspect]
     Active Substance: TERIZIDONE
     Indication: TUBERCULOSIS
     Dosage: 250/500 MG, BID
     Route: 048
     Dates: start: 20190306, end: 20190519
  41. TERIZIDONE [Suspect]
     Active Substance: TERIZIDONE
     Dosage: 250/500 MG, BID
     Route: 048
     Dates: start: 20190701
  42. ERTAPENEM. [Suspect]
     Active Substance: ERTAPENEM SODIUM
     Indication: TUBERCULOSIS
     Dosage: 1 G, QD
     Route: 048
     Dates: start: 20181221, end: 20190221
  43. BEDAQUILINE [Suspect]
     Active Substance: BEDAQUILINE
     Dosage: 200 MG, MWF
     Route: 048
     Dates: start: 20190701
  44. CALCIUM GLUCONATE. [Concomitant]
     Active Substance: CALCIUM GLUCONATE
  45. LYRICA [Concomitant]
     Active Substance: PREGABALIN
  46. BEDAQUILINE [Suspect]
     Active Substance: BEDAQUILINE
     Indication: TUBERCULOSIS
     Dosage: 200 MG, MWF
     Route: 048
     Dates: start: 20190306

REACTIONS (2)
  - Meningitis [Unknown]
  - Renal impairment [Recovered/Resolved]

NARRATIVE: CASE EVENT DATE: 20190220
